FAERS Safety Report 24778790 (Version 2)
Quarter: 2025Q2

REPORT INFORMATION
  Report Type: Report from Study
  Country: US (occurrence: US)
  Receive Date: 20241226
  Receipt Date: 20250414
  Transmission Date: 20250716
  Serious: Yes (Hospitalization)
  Sender: PARATEK PHARMACEUTICALS
  Company Number: US-PARATEK PHARMACEUTICALS, INC.-2024PTK01166

PATIENT
  Age: 75 Year
  Sex: Female

DRUGS (29)
  1. NUZYRA [Suspect]
     Active Substance: OMADACYCLINE
     Indication: Mycobacterium abscessus infection
     Dosage: 450 MG, 1X/DAY
     Route: 048
     Dates: start: 20240927, end: 20240928
  2. NUZYRA [Suspect]
     Active Substance: OMADACYCLINE
     Indication: Infection
     Dosage: 300 MG, 1X/DAY
     Route: 048
     Dates: start: 20240929, end: 20241205
  3. NUZYRA [Suspect]
     Active Substance: OMADACYCLINE
     Dosage: 300 MG, 1X/DAY
     Route: 048
     Dates: start: 20250226
  4. ASCORBIC ACID [Concomitant]
     Active Substance: ASCORBIC ACID
     Dosage: 1000 MG, 1X/DAY
     Route: 048
  5. ASPIRIN [Concomitant]
     Active Substance: ASPIRIN
     Dosage: 81 MG, 1X/DAY
     Route: 048
  6. BRINZOLAMIDE [Concomitant]
     Active Substance: BRINZOLAMIDE
     Dosage: 1 DROP INTO THE LEFT EYE 2X/DAY
  7. CALCITRIOL [Concomitant]
     Active Substance: CALCITRIOL
     Dosage: 0.25 ?G, 1X/DAY
     Route: 048
  8. CHOLESTYRAMINE [Concomitant]
     Active Substance: CHOLESTYRAMINE
     Dosage: 1 PACKET 2X/DAY WITH MEALS
     Route: 048
  9. CLOPIDOGREL [Concomitant]
     Active Substance: CLOPIDOGREL BISULFATE
     Dosage: 75 MG, 1X/DAY
     Route: 048
  10. DILTIAZEM [Concomitant]
     Active Substance: DILTIAZEM
     Dosage: 1 CAPSULE 1X/DAY
  11. ERGOCALCIFEROL [Concomitant]
     Active Substance: ERGOCALCIFEROL
     Dosage: 1250 ?G, 1X/WEEK ON SUNDAYS
     Route: 048
  12. ESCITALOPRAM OXALATE [Concomitant]
     Active Substance: ESCITALOPRAM OXALATE
     Dosage: 20 MG, 1X/DAY
     Route: 048
  13. FERROUS SULFATE [Concomitant]
     Active Substance: FERROUS SULFATE
     Dosage: 325 MG, 1X/DAY
     Route: 048
  14. FOLIC ACID [Concomitant]
     Active Substance: FOLIC ACID
     Dosage: 1 TABLETS, 1X/DAY
     Route: 048
  15. HYDRALAZINE [Concomitant]
     Active Substance: HYDRALAZINE HYDROCHLORIDE
     Dosage: 10 MG, EVERY 8 HOURS
     Route: 048
  16. IBANDRONATE SODIUM [Concomitant]
     Active Substance: IBANDRONATE SODIUM
     Dosage: 150 MG, EVERY 30 DAYS ON THE 15TH OF EACH MONTH
  17. LEVOCETIRIZINE [Concomitant]
     Active Substance: LEVOCETIRIZINE
     Dosage: 5 MG, 1X/DAY, IN THE EVENING
     Route: 048
  18. LORAZEPAM [Concomitant]
     Active Substance: LORAZEPAM
     Dosage: 0.5 MG, 1X/DAY
     Route: 048
  19. MECLIZINE [Concomitant]
     Active Substance: MECLIZINE HYDROCHLORIDE
     Route: 048
     Dates: start: 20241211, end: 20241217
  20. MONTELUKAST [Concomitant]
     Active Substance: MONTELUKAST
     Dosage: 10 MG, 1X/DAY, AT NIGHT
     Route: 048
  21. THERA-M [Concomitant]
     Dosage: 1 TABLET, 1X/DAY
     Route: 048
     Dates: start: 20210720
  22. NYSTATIN [Concomitant]
     Active Substance: NYSTATIN
  23. PANTOPRAZOLE [Concomitant]
     Active Substance: PANTOPRAZOLE
     Dosage: 40 MG, 1X/DAY, BEFORE BREAKFAST
     Route: 048
     Dates: end: 20241216
  24. ROSUVASTATIN [Concomitant]
     Active Substance: ROSUVASTATIN
     Dosage: 5 MG, 1X/DAY
     Route: 048
  25. LOPERAMIDE [Concomitant]
     Active Substance: LOPERAMIDE
     Route: 048
  26. SODIUM BICARBONATE [Concomitant]
     Active Substance: SODIUM BICARBONATE
     Dosage: 650 MG, 3X/DAY
     Route: 048
     Dates: start: 20241127, end: 20241211
  27. BUMETANIDE [Concomitant]
     Active Substance: BUMETANIDE
  28. ONDANSETRON [Concomitant]
     Active Substance: ONDANSETRON
  29. METOPROLOL SUCCINATE [Concomitant]
     Active Substance: METOPROLOL SUCCINATE

REACTIONS (5)
  - Asthenia [Not Recovered/Not Resolved]
  - Fatigue [Not Recovered/Not Resolved]
  - Renal impairment [Not Recovered/Not Resolved]
  - Incorrect product administration duration [Not Recovered/Not Resolved]
  - Off label use [Not Recovered/Not Resolved]

NARRATIVE: CASE EVENT DATE: 20240927
